FAERS Safety Report 12217978 (Version 4)
Quarter: 2016Q3

REPORT INFORMATION
  Report Type: Spontaneous
  Country: US (occurrence: US)
  Receive Date: 20160329
  Receipt Date: 20160722
  Transmission Date: 20161109
  Serious: No
  Sender: FDA-Public Use
  Company Number: US-ACTELION PHARMACEUTICALS US, INC.-A-NJ2016-132706

PATIENT
  Age: 86 Year
  Sex: Male

DRUGS (2)
  1. VALCHLOR [Suspect]
     Active Substance: MECHLORETHAMINE
     Indication: MYCOSIS FUNGOIDES
     Dosage: UNK, DAILY
     Route: 061
     Dates: start: 20160216
  2. PHENOBARBITAL. [Concomitant]
     Active Substance: PHENOBARBITAL

REACTIONS (7)
  - Somnolence [Unknown]
  - Pruritus [Unknown]
  - Scab [Unknown]
  - Pain [Unknown]
  - Erythema [Unknown]
  - Disease progression [Unknown]
  - Myalgia [Unknown]
